FAERS Safety Report 6233024-2 (Version None)
Quarter: 2009Q2

REPORT INFORMATION
  Report Type: 
  Country: None (occurrence: None)
  Receive Date: 20090617
  Receipt Date: 20090602
  Transmission Date: 20091009
  Serious: Yes (Death, Life-Threatening, Hospitalization)
  Sender: FDA-Public Use
  Company Number: B0568747A

PATIENT
  Sex: Male
  Weight: 80 kg

DRUGS (13)
  1. OMACOR [Suspect]
     Indication: DRUG USE FOR UNKNOWN INDICATION
     Dosage: 1000MG PER DAY
     Route: 048
     Dates: start: 20090215, end: 20090227
  2. UNKNOWN DRUG [Concomitant]
  3. PLAVIX [Concomitant]
     Dosage: 75MG UNKNOWN
     Route: 065
  4. ENALAPRIL [Concomitant]
     Dosage: 5MG UNKNOWN
     Route: 065
  5. SEGURIL [Concomitant]
     Dosage: 40MG UNKNOWN
     Route: 065
  6. CARVEDILOL [Concomitant]
     Dosage: 12.5MG UNKNOWN
     Route: 065
  7. PREVENCOR [Concomitant]
     Dosage: 80MG UNKNOWN
     Route: 065
  8. PENTOXIFYLLINE [Concomitant]
     Dosage: 400MG TWICE PER DAY
     Route: 065
  9. GABAPENTIN [Concomitant]
     Dosage: 400MG TWICE PER DAY
     Route: 065
  10. OMEPRAZOLE [Concomitant]
     Dosage: 20MG UNKNOWN
  11. LEVEMIR [Concomitant]
  12. NOVORAPID [Concomitant]
     Route: 065
  13. ARANESP [Concomitant]
     Dosage: 40MCG SEE DOSAGE TEXT
     Route: 065

REACTIONS (18)
  - ACUTE INTERSTITIAL PNEUMONITIS [None]
  - ANAPHYLACTIC REACTION [None]
  - BLOOD IMMUNOGLOBULIN E INCREASED [None]
  - BRONCHOALVEOLAR LAVAGE ABNORMAL [None]
  - CARDIAC FAILURE [None]
  - CONDITION AGGRAVATED [None]
  - COUGH [None]
  - DERMATITIS [None]
  - DYSPNOEA [None]
  - EOSINOPHIL COUNT INCREASED [None]
  - EOSINOPHILIA [None]
  - EOSINOPHILIC PNEUMONIA [None]
  - HYPERSENSITIVITY [None]
  - MULTI-ORGAN FAILURE [None]
  - PULMONARY FIBROSIS [None]
  - RESPIRATORY FAILURE [None]
  - SKIN INJURY [None]
  - URTICARIA [None]
